FAERS Safety Report 7006873-0 (Version None)
Quarter: 2010Q3

REPORT INFORMATION
  Report Type: 
  Country: None (occurrence: None)
  Receive Date: 20100922
  Receipt Date: 20100915
  Transmission Date: 20110219
  Serious: No
  Sender: FDA-Public Use
  Company Number: 2009BI018515

PATIENT
  Age: 51 Year
  Sex: Female

DRUGS (4)
  1. TYSABRI [Suspect]
     Indication: MULTIPLE SCLEROSIS
     Route: 042
     Dates: start: 20090611
  2. AMPYRA [Concomitant]
     Dates: start: 20100601, end: 20100801
  3. VITAMIN B6 [Concomitant]
  4. VITAMIN B-12 [Concomitant]

REACTIONS (24)
  - ARTHRALGIA [None]
  - ASTHENIA [None]
  - BLINDNESS [None]
  - CHEST PAIN [None]
  - COLOUR BLINDNESS ACQUIRED [None]
  - CONFUSIONAL STATE [None]
  - DIZZINESS [None]
  - DYSPNOEA [None]
  - FEELING ABNORMAL [None]
  - FEELING HOT [None]
  - HEADACHE [None]
  - HYPERHIDROSIS [None]
  - HYPERSENSITIVITY [None]
  - HYPOAESTHESIA [None]
  - MULTIPLE SCLEROSIS RELAPSE [None]
  - NASOPHARYNGITIS [None]
  - NAUSEA [None]
  - OSCILLOPSIA [None]
  - PARAESTHESIA [None]
  - TUNNEL VISION [None]
  - VISUAL FIELD DEFECT [None]
  - VISUAL IMPAIRMENT [None]
  - VOMITING [None]
  - WEIGHT DECREASED [None]
